FAERS Safety Report 5531804-X (Version None)
Quarter: 2007Q4

REPORT INFORMATION
  Report Type: 
  Country: None (occurrence: None)
  Receive Date: 20071203
  Receipt Date: 20071127
  Transmission Date: 20080405
  Serious: Yes (Hospitalization)
  Sender: FDA-Public Use
  Company Number: US-BOEHRINGER INGELHEIM PHARMACEUTICALS, INC.-2007-BP-06401BP

PATIENT
  Age: 44 Year
  Sex: Female

DRUGS (4)
  1. MOBIC [Suspect]
     Indication: OSTEOARTHRITIS
     Dates: start: 20061213, end: 20070327
  2. MOBIC [Suspect]
     Dates: start: 20061220, end: 20070320
  3. UNSPECIFIED NON-BI STUDY DRUG [Suspect]
     Indication: OSTEOARTHRITIS
     Dates: start: 20061128, end: 20070327
  4. ACETAMINOPHEN [Concomitant]
     Indication: HEADACHE

REACTIONS (10)
  - CARDIOMEGALY [None]
  - CHEST DISCOMFORT [None]
  - CHEST PAIN [None]
  - CHILLS [None]
  - DIZZINESS [None]
  - HYPOAESTHESIA [None]
  - MUSCULOSKELETAL CHEST PAIN [None]
  - NAUSEA [None]
  - NON-CARDIAC CHEST PAIN [None]
  - SINUS TACHYCARDIA [None]
